FAERS Safety Report 6941340-1 (Version None)
Quarter: 2010Q3

REPORT INFORMATION
  Report Type: 
  Country: None (occurrence: None)
  Receive Date: 20100824
  Receipt Date: 20100824
  Transmission Date: 20110219
  Serious: Yes (Other)
  Sender: FDA-Public Use
  Company Number: None

PATIENT
  Age: 60 Year
  Sex: 0
  Weight: 78.6 kg

DRUGS (1)
  1. OSMOPREP [Suspect]
     Indication: COLONOSCOPY
     Dosage: 32 TABS 20 TABS, THEN 12 ORAL
     Route: 048
     Dates: start: 20100823

REACTIONS (7)
  - BLOOD PRESSURE DECREASED [None]
  - COLD SWEAT [None]
  - CONTUSION [None]
  - FALL [None]
  - HEART RATE IRREGULAR [None]
  - INCOHERENT [None]
  - UNRESPONSIVE TO STIMULI [None]
